FAERS Safety Report 7884397 (Version 3)
Quarter: 2013Q3

REPORT INFORMATION
  Report Type: Spontaneous
  Country: JP (occurrence: JP)
  Receive Date: 20110404
  Receipt Date: 20130916
  Transmission Date: 20140515
  Serious: Yes (Death, Life-Threatening, Other)
  Sender: FDA-Public Use
  Company Number: JP-ASTRAZENECA-2011SE18463

PATIENT
  Age: 45 Year
  Sex: Male

DRUGS (2)
  1. XYLOCAINE VISCOUS [Suspect]
     Indication: LOCAL ANAESTHESIA
     Route: 049
     Dates: start: 20110111, end: 20110111
  2. SOSEGON [Suspect]
     Route: 058

REACTIONS (4)
  - Mental impairment [Unknown]
  - Hypoxic-ischaemic encephalopathy [Unknown]
  - Pneumonia [Fatal]
  - Anaphylactoid shock [Not Recovered/Not Resolved]
